FAERS Safety Report 7945060-6 (Version None)
Quarter: 2011Q4

REPORT INFORMATION
  Report Type: 
  Country: None (occurrence: None)
  Receive Date: 20111129
  Receipt Date: 20111124
  Transmission Date: 20120403
  Serious: Yes (Hospitalization, Disabling, Other)
  Sender: FDA-Public Use
  Company Number: GB-PFIZER INC-2011278990

PATIENT
  Age: 65 Year
  Sex: Male
  Weight: 51 kg

DRUGS (8)
  1. FENTANYL [Suspect]
     Dosage: 25UG, ONCE EVERY 3 DAYS
  2. NALOXONE HCL [Suspect]
     Dosage: 5 MG, 3X/DAY
  3. TRAMADOL HCL [Suspect]
     Dosage: 100 MG, 3X/DAY
  4. ACETAMINOPHEN [Suspect]
     Dosage: 1 G, 3X/DAY
  5. ORAMORPH SR [Suspect]
     Dosage: 15 MG, 3X/DAY
  6. LYRICA [Suspect]
     Dosage: 300 MG, 2X/DAY
  7. LYRICA [Suspect]
     Indication: ABDOMINAL PAIN
     Dosage: 150 MG, 2X/DAY
     Dates: start: 20080101
  8. ORAMORPH SR [Suspect]
     Dosage: 10 MG, 3X/DAY

REACTIONS (2)
  - ABDOMINAL PAIN [None]
  - CARDIO-RESPIRATORY ARREST [None]
